FAERS Safety Report 7986353 (Version 2)
Quarter: 2013Q2

REPORT INFORMATION
  Report Type: Report from Study
  Country: AU (occurrence: AU)
  Receive Date: 20110610
  Receipt Date: 20130419
  Transmission Date: 20140414
  Serious: No
  Sender: FDA-Public Use
  Company Number: AU-ROCHE-780352

PATIENT
  Sex: Male

DRUGS (7)
  1. ACTEMRA [Suspect]
     Indication: RHEUMATOID ARTHRITIS
     Route: 042
  2. ACTEMRA [Suspect]
     Route: 042
  3. METFORMIN [Concomitant]
  4. GLICLAZIDE [Concomitant]
  5. LIPEX [Concomitant]
  6. PRADAXA [Concomitant]
  7. CLOPIDOGREL [Concomitant]

REACTIONS (3)
  - Hypertension [Recovering/Resolving]
  - Heart rate irregular [Recovering/Resolving]
  - Hypoaesthesia [Recovering/Resolving]
